FAERS Safety Report 5990871-X (Version None)
Quarter: 2008Q4

REPORT INFORMATION
  Report Type: 
  Country: None (occurrence: None)
  Receive Date: 20081211
  Receipt Date: 20081204
  Transmission Date: 20090506
  Serious: Yes (Other)
  Sender: FDA-Public Use
  Company Number: JP-ASTRAZENECA-2008AP09417

PATIENT
  Age: 57 Year
  Sex: Female

DRUGS (2)
  1. ANAPEINE INJECTION [Suspect]
     Indication: ANALGESIA
     Dosage: 2MG/ML
     Route: 008
  2. FENTANYL-100 [Concomitant]
     Indication: ANALGESIA
     Dosage: DOSE UNKNWON
     Route: 008

REACTIONS (1)
  - SUBDURAL HAEMATOMA [None]
